FAERS Safety Report 7820729-2 (Version None)
Quarter: 2011Q4

REPORT INFORMATION
  Report Type: 
  Country: None (occurrence: None)
  Receive Date: 20111018
  Receipt Date: 20111003
  Transmission Date: 20120403
  Serious: Yes (Other)
  Sender: FDA-Public Use
  Company Number: US-JUTA GMBH-2011-15855

PATIENT
  Sex: Female
  Weight: 58.957 kg

DRUGS (5)
  1. ALENDRONATE SODIUM [Suspect]
     Dosage: 70 MG, 1/WEEK
     Route: 048
     Dates: start: 20080101, end: 20100101
  2. LANOXIN [Concomitant]
     Indication: HEART RATE IRREGULAR
     Dosage: DAILY
     Route: 048
  3. COUMADIN [Concomitant]
     Indication: HEART RATE IRREGULAR
     Dosage: DAILY
     Route: 048
  4. ALENDRONATE SODIUM [Suspect]
     Indication: BONE DISORDER
     Dosage: 70 MG, 1/WEEK
     Route: 048
     Dates: start: 20100901
  5. METHOTREXATE [Concomitant]
     Indication: RHEUMATOID ARTHRITIS
     Dosage: DAILY
     Route: 048

REACTIONS (8)
  - DYSPEPSIA [None]
  - BLOOD CALCIUM INCREASED [None]
  - HUNGER [None]
  - BACK PAIN [None]
  - WEIGHT DECREASED [None]
  - WRONG TECHNIQUE IN DRUG USAGE PROCESS [None]
  - ABDOMINAL PAIN UPPER [None]
  - LUMBAR VERTEBRAL FRACTURE [None]
